FAERS Safety Report 8851373 (Version 1)
Quarter: 2012Q4

REPORT INFORMATION
  Report Type: 
  Country: NL (occurrence: NL)
  Receive Date: 20121022
  Receipt Date: 20121022
  Transmission Date: 20130627
  Serious: Yes (Hospitalization)
  Sender: FDA-Public Use
  Company Number: NL-AMGEN-NLDSP2012066356

PATIENT
  Age: 63 Year
  Sex: Male

DRUGS (5)
  1. ENBREL [Suspect]
     Indication: RHEUMATOID ARTHRITIS
     Dosage: 50 mg, weekly
     Dates: start: 20111107
  2. METHOTREXATE SODIUM [Suspect]
     Dosage: 25 mg, UNK
  3. METHOTREXATE SODIUM [Suspect]
     Dosage: 30 mg, UNK
  4. FOLIC ACID [Concomitant]
     Dosage: UNK
  5. DICLOFENAC [Concomitant]
     Dosage: UNK

REACTIONS (1)
  - Contusion [Recovering/Resolving]
